FAERS Safety Report 21787700 (Version 7)
Quarter: 2023Q1

REPORT INFORMATION
  Report Type: Report from Study
  Country: JP (occurrence: JP)
  Receive Date: 20221228
  Receipt Date: 20230330
  Transmission Date: 20230418
  Serious: Yes (Hospitalization)
  Sender: FDA-Public Use
  Company Number: JP-002147023-NVSC2022JP298062

PATIENT
  Age: 75 Year
  Sex: Female
  Weight: 45.2 kg

DRUGS (32)
  1. ILARIS [Suspect]
     Active Substance: CANAKINUMAB
     Indication: Still^s disease
     Dosage: 1.25 ML, Q4W
     Route: 058
     Dates: start: 20211013
  2. PREDNISOLONE [Suspect]
     Active Substance: PREDNISOLONE
     Indication: Still^s disease
     Dosage: UNK
     Route: 065
     Dates: start: 20221203, end: 20230101
  3. CAMPHOR\CAPSICUM\METHYL SALICYLATE [Concomitant]
     Active Substance: CAMPHOR\CAPSICUM\METHYL SALICYLATE
     Indication: Sciatica
     Dosage: UNK
     Route: 065
     Dates: start: 20220105
  4. SODIUM BICARBONATE\SODIUM PHOSPHATE, MONOBASIC [Concomitant]
     Active Substance: SODIUM BICARBONATE\SODIUM PHOSPHATE, MONOBASIC
     Indication: Constipation
     Dosage: UNK
     Route: 065
     Dates: start: 20220330
  5. AMITIZA [Concomitant]
     Active Substance: LUBIPROSTONE
     Indication: Constipation
     Dosage: UNK
     Route: 065
     Dates: start: 20220623
  6. BISACODYL [Concomitant]
     Active Substance: BISACODYL
     Indication: Constipation
     Dosage: UNK
     Route: 065
     Dates: start: 20221124
  7. LANSOPRAZOLE [Concomitant]
     Active Substance: LANSOPRAZOLE
     Indication: Gastric ulcer
     Dosage: UNK
     Route: 065
     Dates: start: 20221127
  8. BELSOMRA [Concomitant]
     Active Substance: SUVOREXANT
     Indication: Insomnia
     Dosage: UNK
     Route: 065
     Dates: start: 20221203
  9. METOCLOPRAMIDE [Concomitant]
     Active Substance: METOCLOPRAMIDE
     Indication: Vertigo positional
     Dosage: UNK
     Route: 065
     Dates: start: 20221203
  10. ATOVAQUONE [Concomitant]
     Active Substance: ATOVAQUONE
     Indication: Infection prophylaxis
     Dosage: UNK
     Route: 065
     Dates: start: 20221203
  11. SENNOSIDES [Concomitant]
     Active Substance: SENNOSIDES
     Indication: Constipation
     Dosage: UNK
     Route: 065
     Dates: start: 20221204
  12. AMPICILLIN SODIUM\SULBACTAM SODIUM [Concomitant]
     Active Substance: AMPICILLIN SODIUM\SULBACTAM SODIUM
     Indication: Osteomyelitis
     Dosage: UNK
     Route: 065
     Dates: start: 20221206, end: 20221209
  13. AMPICILLIN SODIUM\SULBACTAM SODIUM [Concomitant]
     Active Substance: AMPICILLIN SODIUM\SULBACTAM SODIUM
     Indication: Cellulitis
  14. AUGMENTIN [Concomitant]
     Active Substance: AMOXICILLIN\CLAVULANATE POTASSIUM
     Indication: Cellulitis
     Dosage: UNK
     Route: 065
     Dates: start: 20221209
  15. AUGMENTIN [Concomitant]
     Active Substance: AMOXICILLIN\CLAVULANATE POTASSIUM
     Indication: Osteomyelitis
  16. AMOXICILLIN [Concomitant]
     Active Substance: AMOXICILLIN
     Indication: Cellulitis
     Dosage: UNK
     Route: 065
     Dates: start: 20221209
  17. AMOXICILLIN [Concomitant]
     Active Substance: AMOXICILLIN
     Indication: Osteomyelitis
  18. MIYA-BM [Concomitant]
     Active Substance: CLOSTRIDIUM BUTYRICUM SPORES STRAIN M-55
     Indication: Constipation
     Dosage: UNK
     Route: 065
     Dates: start: 20221209
  19. ACETAMINOPHEN [Concomitant]
     Active Substance: ACETAMINOPHEN
     Indication: Pain
     Dosage: UNK
     Route: 065
     Dates: start: 20221208
  20. ACETAMINOPHEN [Concomitant]
     Active Substance: ACETAMINOPHEN
     Indication: Still^s disease
  21. ACETAMINOPHEN [Concomitant]
     Active Substance: ACETAMINOPHEN
     Indication: Herpes zoster
  22. GINGICAINE [Concomitant]
     Indication: Local anaesthesia
     Dosage: UNK
     Route: 065
     Dates: start: 20221208, end: 20221208
  23. EPILIDO [Concomitant]
     Indication: Anaesthesia
     Dosage: UNK
     Route: 065
     Dates: start: 20221208, end: 20221208
  24. TRAVELMIN [Concomitant]
     Indication: Vertigo positional
     Dosage: UNK
     Route: 065
     Dates: start: 20221213
  25. MAGNESIUM OXIDE [Concomitant]
     Active Substance: MAGNESIUM OXIDE
     Indication: Constipation
     Dosage: UNK
     Route: 065
     Dates: start: 20221216
  26. LOCOID [Concomitant]
     Active Substance: HYDROCORTISONE BUTYRATE
     Indication: Dry skin
     Dosage: UNK
     Route: 065
     Dates: start: 20221109
  27. AMLODIPINE [Concomitant]
     Active Substance: AMLODIPINE BESYLATE
     Indication: Hypertension
     Dosage: UNK
     Route: 065
     Dates: start: 1997
  28. AZUNOL [Concomitant]
     Indication: Still^s disease
     Dosage: GARGLE
     Route: 065
     Dates: start: 20210905
  29. AZUNOL [Concomitant]
     Indication: Dry skin
     Dosage: OINTMENT
     Route: 065
     Dates: start: 20210924
  30. AZUNOL [Concomitant]
     Indication: Herpes zoster
  31. HEPARINOID [Concomitant]
     Indication: Dry skin
     Dosage: UNK
     Route: 065
     Dates: start: 20210906
  32. CARBOCYSTEINE [Concomitant]
     Active Substance: CARBOCYSTEINE
     Indication: Productive cough
     Dosage: UNK
     Route: 065
     Dates: start: 20221225

REACTIONS (1)
  - COVID-19 pneumonia [Recovered/Resolved]

NARRATIVE: CASE EVENT DATE: 20221225
